FAERS Safety Report 4978888-5 (Version None)
Quarter: 2006Q2

REPORT INFORMATION
  Report Type: 
  Country: None (occurrence: None)
  Receive Date: 20060417
  Receipt Date: 20060406
  Transmission Date: 20061013
  Serious: Yes (Other)
  Sender: FDA-Public Use
  Company Number: 060406-0000324

PATIENT

DRUGS (4)
  1. COSMEGEN [Suspect]
     Indication: EWING'S SARCOMA
     Dosage: INJ
  2. VINCRISTINE SULFATE [Suspect]
     Indication: DRUG USE FOR UNKNOWN INDICATION
  3. IFOSFAMIDE [Suspect]
     Indication: NEOPLASM MALIGNANT
  4. DOXORUBICIN HYDROCHLORIDE [Suspect]
     Indication: NEOPLASM MALIGNANT

REACTIONS (2)
  - NEUTROPENIA [None]
  - WHITE BLOOD CELL COUNT DECREASED [None]
